FAERS Safety Report 18278016 (Version 6)
Quarter: 2021Q1

REPORT INFORMATION
  Report Type: Spontaneous
  Country: US (occurrence: US)
  Receive Date: 20200917
  Receipt Date: 20210119
  Transmission Date: 20210419
  Serious: Yes (Other)
  Sender: FDA-Public Use
  Company Number: US-GLAXOSMITHKLINE-US2020AMR185091

PATIENT
  Sex: Female

DRUGS (6)
  1. ZEJULA [Suspect]
     Active Substance: NIRAPARIB
     Dosage: 200 MG, QD
     Route: 048
  2. COMPAZINE [Suspect]
     Active Substance: PROCHLORPERAZINE MALEATE
     Indication: NAUSEA
     Dosage: UNK
  3. ZEJULA [Suspect]
     Active Substance: NIRAPARIB
     Indication: OVARIAN CANCER
     Dosage: 300 MG, QD
     Dates: start: 20200908
  4. ZEJULA [Suspect]
     Active Substance: NIRAPARIB
     Dosage: 200 MG, QD
  5. ZEJULA [Suspect]
     Active Substance: NIRAPARIB
     Dosage: 200 MG, QD
  6. ZEJULA [Suspect]
     Active Substance: NIRAPARIB
     Dosage: 200 MG, QD
     Route: 048
     Dates: start: 2020

REACTIONS (25)
  - Vitreous floaters [Unknown]
  - Fatigue [Unknown]
  - Dyspepsia [Unknown]
  - Loss of consciousness [Unknown]
  - Headache [Not Recovered/Not Resolved]
  - Tremor [Unknown]
  - Urine odour abnormal [Unknown]
  - Nerve injury [Unknown]
  - Illness [Unknown]
  - Feeling abnormal [Unknown]
  - Drug intolerance [Unknown]
  - Intentional product use issue [Unknown]
  - Product dose omission issue [Unknown]
  - Therapy cessation [Unknown]
  - Back pain [Unknown]
  - Myalgia [Recovering/Resolving]
  - Dizziness [Unknown]
  - Bone pain [Not Recovered/Not Resolved]
  - Gait inability [Unknown]
  - Loss of personal independence in daily activities [Unknown]
  - Dysuria [Unknown]
  - Arthritis [Unknown]
  - Nausea [Not Recovered/Not Resolved]
  - Arthralgia [Recovering/Resolving]
  - Drug monitoring procedure not performed [Unknown]
